FAERS Safety Report 5967683-6 (Version None)
Quarter: 2008Q4

REPORT INFORMATION
  Report Type: 
  Country: None (occurrence: None)
  Receive Date: 20081126
  Receipt Date: 20081120
  Transmission Date: 20090506
  Serious: Yes (Death)
  Sender: FDA-Public Use
  Company Number: PHHY2008GB24666

PATIENT
  Sex: Male

DRUGS (5)
  1. CLOZARIL [Suspect]
     Indication: SCHIZOPHRENIA
     Dosage: UNK
     Dates: start: 20000104
  2. LITHIUM CARBONATE [Concomitant]
     Indication: PSYCHOTIC DISORDER
     Dosage: 600 MG
     Route: 048
  3. LANSOPRAZOLE [Concomitant]
     Dosage: 30 MG
     Route: 048
  4. CREON [Concomitant]
     Dosage: 10000 UNITS
     Route: 048
  5. HYOSCINE [Concomitant]
     Indication: SALIVARY HYPERSECRETION
     Dosage: 300 MCG
     Route: 048

REACTIONS (1)
  - LOWER RESPIRATORY TRACT INFECTION [None]
